FAERS Safety Report 4735879-7 (Version None)
Quarter: 2005Q3

REPORT INFORMATION
  Report Type: 
  Country: None (occurrence: None)
  Receive Date: 20050804
  Receipt Date: 20050804
  Transmission Date: 20060218
  Serious: Yes (Life-Threatening, Hospitalization)
  Sender: FDA-Public Use
  Company Number: None

PATIENT
  Sex: Female
  Weight: 105 kg

DRUGS (1)
  1. LO/OVRAL [Suspect]
     Indication: CONTRACEPTION
     Dosage: 1 TABLET DAILY ORAL
     Route: 048
     Dates: start: 19991214, end: 20050727

REACTIONS (4)
  - FIBRIN D DIMER INCREASED [None]
  - NAUSEA [None]
  - PULMONARY EMBOLISM [None]
  - THERAPY NON-RESPONDER [None]
